FAERS Safety Report 4388404-7 (Version None)
Quarter: 2004Q2

REPORT INFORMATION
  Report Type: 
  Country: None (occurrence: None)
  Receive Date: 20040625
  Receipt Date: 20040615
  Transmission Date: 20050107
  Serious: Yes (Other)
  Sender: FDA-Public Use
  Company Number: HQ2241808MAY2002

PATIENT
  Age: 37 Year
  Sex: Female
  Weight: 62.8 kg

DRUGS (5)
  1. RAPAMUNE [Suspect]
     Indication: GLOMERULONEPHRITIS MEMBRANOUS
     Dosage: ORAL
     Route: 048
     Dates: start: 20011204, end: 20020110
  2. AVAPRO [Concomitant]
  3. LIPITOR [Concomitant]
  4. FUROSEMIDE [Concomitant]
  5. FLONASE [Concomitant]

REACTIONS (2)
  - BLOOD PRESSURE SYSTOLIC INCREASED [None]
  - RENAL FAILURE ACUTE [None]
